FAERS Safety Report 7416637-1 (Version None)
Quarter: 2011Q2

REPORT INFORMATION
  Report Type: 
  Country: None (occurrence: None)
  Receive Date: 20110415
  Receipt Date: 20110405
  Transmission Date: 20111010
  Serious: No
  Sender: FDA-Public Use
  Company Number: US-BIOGENIDEC-2010BI040098

PATIENT
  Sex: Female

DRUGS (1)
  1. TYSABRI [Suspect]
     Indication: MULTIPLE SCLEROSIS
     Route: 042
     Dates: start: 20101114, end: 20101114

REACTIONS (7)
  - FEELING HOT [None]
  - RASH ERYTHEMATOUS [None]
  - HYPERSENSITIVITY [None]
  - GAIT DISTURBANCE [None]
  - RASH MACULAR [None]
  - FALL [None]
  - FLUSHING [None]
